FAERS Safety Report 9163916 (Version 3)
Quarter: 2013Q2

REPORT INFORMATION
  Report Type: Spontaneous
  Country: US (occurrence: US)
  Receive Date: 20130314
  Receipt Date: 20130425
  Transmission Date: 20140414
  Serious: Yes (Other)
  Sender: FDA-Public Use
  Company Number: US-AMGEN-USASP2013015789

PATIENT
  Age: 90 Year
  Sex: Female
  Weight: 46.71 kg

DRUGS (3)
  1. XGEVA [Suspect]
     Indication: METASTASES TO BONE
     Dosage: 120 MG, QMO
     Route: 058
     Dates: start: 20100810, end: 20120810
  2. ARANESP [Concomitant]
     Indication: ANAEMIA
     Dosage: 200 MG, Q2WK
     Route: 058
     Dates: start: 20100507
  3. ALIMTA [Concomitant]
     Indication: LUNG NEOPLASM MALIGNANT
     Dosage: UNK UNK, Q3WK
     Route: 042
     Dates: start: 20100301, end: 20100920

REACTIONS (2)
  - Infection [Recovered/Resolved]
  - Osteonecrosis of jaw [Recovering/Resolving]
